FAERS Safety Report 11236854 (Version 1)
Quarter: 2015Q3

REPORT INFORMATION
  Report Type: Spontaneous
  Country: IL (occurrence: IL)
  Receive Date: 20150703
  Receipt Date: 20150703
  Transmission Date: 20151125
  Serious: Yes (Death, Hospitalization, Other)
  Sender: FDA-Public Use
  Company Number: IL-ROCHE-1572450

PATIENT
  Age: 52 Year
  Sex: Female

DRUGS (2)
  1. PACLITAXEL. [Concomitant]
     Active Substance: PACLITAXEL
     Indication: CERVIX CANCER METASTATIC
     Route: 065
     Dates: start: 201311
  2. AVASTIN [Suspect]
     Active Substance: BEVACIZUMAB
     Indication: CERVIX CARCINOMA
     Dosage: 400 MG TOTAL
     Route: 042
     Dates: start: 201311, end: 20131225

REACTIONS (4)
  - Pelvic pain [Unknown]
  - Fistula [Unknown]
  - General physical health deterioration [Fatal]
  - Proctalgia [Unknown]
